FAERS Safety Report 11273680 (Version 1)
Quarter: 2015Q2

REPORT INFORMATION
  Report Type: Spontaneous
  Country: US (occurrence: None)
  Receive Date: 20150625
  Receipt Date: 20150625
  Transmission Date: 20150821
  Serious: No
  Sender: FDA-Public Use
  Company Number: A-NJ2015-115252

PATIENT
  Age: 82 Year
  Sex: Female

DRUGS (2)
  1. ASPIRIN (ACETYLSALICYLIC ACID) [Concomitant]
     Active Substance: ASPIRIN
  2. OPSUMIT [Suspect]
     Active Substance: MACITENTAN
     Indication: PULMONARY HYPERTENSION
     Route: 048

REACTIONS (8)
  - Headache [None]
  - Ear congestion [None]
  - Drug dose omission [None]
  - Influenza [None]
  - Scleroderma [None]
  - Influenza like illness [None]
  - Sinus congestion [None]
  - Hypersensitivity [None]

NARRATIVE: CASE EVENT DATE: 20150311
